FAERS Safety Report 13778069 (Version 2)
Quarter: 2019Q1

REPORT INFORMATION
  Report Type: Report from Study
  Country: None (occurrence: US)
  Receive Date: 20170721
  Receipt Date: 20190130
  Transmission Date: 20190417
  Serious: Yes (Other)
  Sender: FDA-Public Use
  Company Number: US-ABBVIE-17K-163-2045217-00

PATIENT
  Sex: Female

DRUGS (1)
  1. HUMIRA [Suspect]
     Active Substance: ADALIMUMAB
     Indication: CROHN^S DISEASE
     Route: 058

REACTIONS (15)
  - Melanocytic naevus [Recovered/Resolved]
  - Chills [Recovering/Resolving]
  - Oropharyngeal pain [Recovering/Resolving]
  - Gastrointestinal wall thinning [Not Recovered/Not Resolved]
  - Infection [Recovered/Resolved]
  - Crohn^s disease [Not Recovered/Not Resolved]
  - Frustration tolerance decreased [Not Recovered/Not Resolved]
  - Increased tendency to bruise [Recovering/Resolving]
  - Colitis [Not Recovered/Not Resolved]
  - Crying [Not Recovered/Not Resolved]
  - Dysphagia [Recovering/Resolving]
  - Melanocytic naevus [Recovered/Resolved]
  - Dizziness [Recovering/Resolving]
  - Pyrexia [Recovering/Resolving]
  - Headache [Recovering/Resolving]

NARRATIVE: CASE EVENT DATE: 2017
